FAERS Safety Report 6361664-9 (Version None)
Quarter: 2009Q3

REPORT INFORMATION
  Report Type: 
  Country: None (occurrence: None)
  Receive Date: 20090918
  Receipt Date: 20090908
  Transmission Date: 20100115
  Serious: Yes (Death)
  Sender: FDA-Public Use
  Company Number: NL-MERCK-0907NLD00022

PATIENT
  Age: 65 Year
  Sex: Female
  Weight: 98 kg

DRUGS (2)
  1. HYZAAR [Suspect]
     Indication: HYPERTENSION
     Route: 048
     Dates: start: 20070101
  2. DICLOFENAC [Suspect]
     Indication: BACK PAIN
     Route: 048
     Dates: start: 20090619

REACTIONS (1)
  - HYPERTENSIVE CRISIS [None]
